FAERS Safety Report 5064157-4 (Version None)
Quarter: 2006Q3

REPORT INFORMATION
  Report Type: 
  Country: None (occurrence: None)
  Receive Date: 20060728
  Receipt Date: 20051214
  Transmission Date: 20061208
  Serious: No
  Sender: FDA-Public Use
  Company Number: US-GLAXOSMITHKLINE-A0585859A

PATIENT
  Age: 6 Week
  Sex: Female
  Weight: 4.8 kg

DRUGS (2)
  1. ZANTAC [Suspect]
     Dosage: 1.6ML TWICE PER DAY
     Route: 048
     Dates: start: 20051109, end: 20051212
  2. NO CONCURRENT MEDICATION [Concomitant]

REACTIONS (2)
  - HYPERSOMNIA [None]
  - OVERDOSE [None]
